FAERS Safety Report 23552960 (Version 3)
Quarter: 2024Q1

REPORT INFORMATION
  Report Type: Spontaneous
  Country: US (occurrence: US)
  Receive Date: 20240222
  Receipt Date: 20240227
  Transmission Date: 20240410
  Serious: No
  Sender: FDA-Public Use
  Company Number: US-BIOGEN-2024BI01251615

PATIENT
  Sex: Female

DRUGS (1)
  1. PLEGRIDY [Suspect]
     Active Substance: PEGINTERFERON BETA-1A
     Indication: Multiple sclerosis
     Route: 050
     Dates: start: 20240118

REACTIONS (6)
  - Drug delivery system malfunction [Unknown]
  - Incorrect drug administration rate [Unknown]
  - Injection site swelling [Unknown]
  - Injection site indentation [Unknown]
  - Injection site erythema [Unknown]
  - Injection site pain [Unknown]
